FAERS Safety Report 16575312 (Version 1)
Quarter: 2019Q3

REPORT INFORMATION
  Report Type: Spontaneous
  Country: DE (occurrence: DE)
  Receive Date: 20190716
  Receipt Date: 20190716
  Transmission Date: 20191004
  Serious: Yes (Hospitalization)
  Sender: FDA-Public Use
  Company Number: DE-TAKEDA-2019TUS042289

PATIENT
  Age: 68 Year
  Sex: Male
  Weight: 78 kg

DRUGS (23)
  1. OSTEOTRIOL [Concomitant]
     Dosage: 0.25 MICROGRAM
     Route: 048
  2. BICANORM [Concomitant]
     Active Substance: SODIUM BICARBONATE
     Dosage: 1 GRAM
     Route: 048
  3. CALCITRAT [Concomitant]
     Dosage: UNK
     Route: 048
  4. MAGNESIUM DIASPORAL                /00434501/ [Concomitant]
     Dosage: UNK
     Route: 051
  5. ZINK                               /00156501/ [Concomitant]
     Dosage: UNK
     Route: 048
  6. DEKRISTOL [Concomitant]
     Active Substance: CHOLECALCIFEROL
     Dosage: UNK
     Route: 048
  7. AMITRIPTYLIN [Concomitant]
     Active Substance: AMITRIPTYLINE
     Dosage: 25 MILLIGRAM
     Route: 048
  8. CIPROFLOXACIN. [Concomitant]
     Active Substance: CIPROFLOXACIN
     Dosage: 250 MILLIGRAM
     Route: 048
  9. ENTYVIO [Suspect]
     Active Substance: VEDOLIZUMAB
     Indication: PRODUCT USED FOR UNKNOWN INDICATION
     Dosage: UNK
     Route: 042
  10. PREDNISOLON                        /00016201/ [Suspect]
     Active Substance: PREDNISOLONE
     Dosage: 7.5 MILLIGRAM
  11. BISOPROLOL [Concomitant]
     Active Substance: BISOPROLOL
     Dosage: 5 MILLIGRAM
     Route: 048
  12. OPIUM TINCTURE [Concomitant]
     Active Substance: MORPHINE
     Dosage: UNK
     Route: 048
  13. PLASTULEN EISEN [Concomitant]
     Dosage: 55 MILLIGRAM
     Route: 048
  14. STEROFUNDIN ISO [Concomitant]
     Dosage: UNK
     Route: 051
  15. VERSATIS [Concomitant]
     Active Substance: LIDOCAINE
     Dosage: 700 MILLIGRAM
     Route: 062
  16. ADENURIC [Concomitant]
     Active Substance: FEBUXOSTAT
     Dosage: 80 MILLIGRAM
     Route: 048
  17. RAMIPRIL COMP [Concomitant]
     Active Substance: HYDROCHLOROTHIAZIDE\RAMIPRIL
     Dosage: 5.25 MILLIGRAM
     Route: 048
  18. D3 VICOTRAT [Concomitant]
     Dosage: UNK
     Route: 030
  19. LAMIVUDIN AUROBINDO [Concomitant]
     Dosage: 100 MILLIGRAM
     Route: 048
  20. PREDNISOLON                        /00016201/ [Suspect]
     Active Substance: PREDNISOLONE
     Indication: PRODUCT USED FOR UNKNOWN INDICATION
     Dosage: 5 MILLIGRAM
     Route: 048
  21. PANTOPRAZOL [Concomitant]
     Active Substance: PANTOPRAZOLE SODIUM
     Dosage: 40 MILLIGRAM
     Route: 048
  22. OPTI COMFORT [Concomitant]
     Dosage: UNK
     Route: 048
  23. MAGNETRANS                         /01486820/ [Concomitant]
     Dosage: 150 MILLIGRAM

REACTIONS (4)
  - Musculoskeletal pain [Unknown]
  - Pyrexia [Unknown]
  - General physical health deterioration [Unknown]
  - Hypertension [Unknown]
